FAERS Safety Report 12709862 (Version 2)
Quarter: 2016Q3

REPORT INFORMATION
  Report Type: Spontaneous
  Country: US (occurrence: US)
  Receive Date: 20160902
  Receipt Date: 20160905
  Transmission Date: 20161109
  Serious: Yes (Hospitalization)
  Sender: FDA-Public Use
  Company Number: US-HORIZON-RAV-0172-2016

PATIENT
  Age: 3 Year
  Sex: Male

DRUGS (2)
  1. RAVICTI [Suspect]
     Active Substance: GLYCEROL PHENYLBUTYRATE
     Indication: ORNITHINE TRANSCARBAMOYLASE DEFICIENCY
     Dosage: 2 ML TID
     Dates: start: 20150930
  2. CITRULLINE [Concomitant]
     Active Substance: CITRULLINE

REACTIONS (3)
  - Hyperammonaemia [Unknown]
  - Gastrointestinal tube insertion [Unknown]
  - Salmonellosis [Unknown]
